FAERS Safety Report 7203525-9 (Version None)
Quarter: 2010Q4

REPORT INFORMATION
  Report Type: 
  Country: None (occurrence: None)
  Receive Date: 20101228
  Receipt Date: 20101228
  Transmission Date: 20110411
  Serious: Yes (Other)
  Sender: FDA-Public Use
  Company Number: None

PATIENT
  Age: 55 Year
  Sex: Female
  Weight: 113.3993 kg

DRUGS (1)
  1. REFRESHING APRICOT SCRUB COSMETIC SCRUB EQUATE [Suspect]
     Indication: THERAPEUTIC SKIN CARE TOPICAL
     Dosage: SCRUB TOP  (1 DAY ABOUT WEEK  AGO; 2 DAYS THIS WEEK)
     Route: 061

REACTIONS (2)
  - APPLICATION SITE FOLLICULITIS [None]
  - PRODUCT CONTAMINATION MICROBIAL [None]
